FAERS Safety Report 6672383-3 (Version None)
Quarter: 2010Q2

REPORT INFORMATION
  Report Type: 
  Country: None (occurrence: None)
  Receive Date: 20100406
  Receipt Date: 20100322
  Transmission Date: 20101027
  Serious: Yes (Hospitalization)
  Sender: FDA-Public Use
  Company Number: 8052818

PATIENT
  Sex: Male
  Weight: 50 kg

DRUGS (3)
  1. CERTOLIZUMAB PEGOL (CERTOLIZUMAB PEGOL) [Suspect]
     Indication: CROHN'S DISEASE
     Dosage: 400 MG 1X/2WEEKS, - NR OF DOSES: 3 SUBCUTANEOUS), (400 MG, DOSE FREQ.: ONCE MONTNLY SUBCUTANEOUS), (
     Route: 058
     Dates: start: 20040718, end: 20040815
  2. CERTOLIZUMAB PEGOL (CERTOLIZUMAB PEGOL) [Suspect]
     Indication: CROHN'S DISEASE
     Dosage: 400 MG 1X/2WEEKS, - NR OF DOSES: 3 SUBCUTANEOUS), (400 MG, DOSE FREQ.: ONCE MONTNLY SUBCUTANEOUS), (
     Route: 058
     Dates: start: 20040912, end: 20041229
  3. CERTOLIZUMAB PEGOL (CERTOLIZUMAB PEGOL) [Suspect]
     Indication: CROHN'S DISEASE
     Dosage: 400 MG 1X/2WEEKS, - NR OF DOSES: 3 SUBCUTANEOUS), (400 MG, DOSE FREQ.: ONCE MONTNLY SUBCUTANEOUS), (
     Route: 058
     Dates: start: 20050130

REACTIONS (3)
  - ABDOMINAL ABSCESS [None]
  - FISTULA [None]
  - SEPSIS [None]
